FAERS Safety Report 17410958 (Version 1)
Quarter: 2020Q1

REPORT INFORMATION
  Report Type: Spontaneous
  Country: US (occurrence: US)
  Receive Date: 20200212
  Receipt Date: 20200212
  Transmission Date: 20200409
  Serious: No
  Sender: FDA-Public Use
  Company Number: US-TEIKOKU PHARMA USA-TPU2020-00066

PATIENT
  Sex: Female

DRUGS (2)
  1. LIDOCAINE PATCH [Suspect]
     Active Substance: LIDOCAINE
     Indication: BACK PAIN
     Route: 061
  2. LIDOCAINE PATCH [Suspect]
     Active Substance: LIDOCAINE
     Indication: NECK PAIN

REACTIONS (1)
  - Expired product administered [Unknown]
